FAERS Safety Report 13711753 (Version 1)
Quarter: 2017Q3

REPORT INFORMATION
  Report Type: Spontaneous
  Country: US (occurrence: US)
  Receive Date: 20170703
  Receipt Date: 20170703
  Transmission Date: 20171127
  Serious: Yes (Other)
  Sender: FDA-Public Use
  Company Number: US-SA-2017SA091570

PATIENT
  Age: 58 Year
  Sex: Female

DRUGS (1)
  1. DUPIXENT [Suspect]
     Active Substance: DUPILUMAB
     Indication: DERMATITIS ATOPIC
     Dosage: EVERY 2 WEEK?STRENGT:300MG/2ML
     Route: 058
     Dates: start: 20170427

REACTIONS (3)
  - Thrombosis [Unknown]
  - Skin exfoliation [Unknown]
  - Pain in extremity [Unknown]
